FAERS Safety Report 9599870 (Version 1)
Quarter: 2013Q4

REPORT INFORMATION
  Report Type: Spontaneous
  Country: US (occurrence: US)
  Receive Date: 20131004
  Receipt Date: 20131004
  Transmission Date: 20140711
  Serious: No
  Sender: FDA-Public Use
  Company Number: US-AMGEN-USASP2013031949

PATIENT
  Age: 46 Year
  Sex: Female

DRUGS (9)
  1. ENBREL [Suspect]
     Indication: PRODUCT USED FOR UNKNOWN INDICATION
     Dosage: 50 MG, QWK
     Route: 058
  2. ZOCOR [Concomitant]
     Dosage: 10 MG, UNK
  3. CYMBALTA [Concomitant]
     Dosage: 20 MG, UNK
  4. ABILIFY [Concomitant]
     Dosage: 10 MG, UNK
  5. XANAX [Concomitant]
     Dosage: 2 MG, UNK
  6. ALBUTEROL                          /00139501/ [Concomitant]
     Dosage: 2 MG, UNK
  7. TRAZODONE [Concomitant]
     Dosage: 100 MG, UNK
  8. PROPRANOLOL [Concomitant]
     Dosage: 10 MG, UNK
  9. LOMOTIL [Concomitant]
     Dosage: 2.5 MG, UNK

REACTIONS (1)
  - Bronchitis [Recovered/Resolved]
